FAERS Safety Report 17689839 (Version 1)
Quarter: 2020Q2

REPORT INFORMATION
  Report Type: Spontaneous
  Country: US (occurrence: US)
  Receive Date: 20200420
  Receipt Date: 20200420
  Transmission Date: 20200714
  Serious: No
  Sender: FDA-Public Use
  Company Number: None

PATIENT
  Age: 43 Year
  Sex: Male

DRUGS (2)
  1. DOXORUBICIN INJ 2MG/ML [Suspect]
     Active Substance: DOXORUBICIN
     Indication: HODGKIN^S DISEASE
     Dosage: ?          OTHER FREQUENCY:UNKNOWN;?
     Route: 042
     Dates: start: 202002
  2. BLEOMYCIN [Concomitant]
     Active Substance: BLEOMYCIN SULFATE

REACTIONS (1)
  - Off label use [None]

NARRATIVE: CASE EVENT DATE: 20200420
